FAERS Safety Report 5563287-8 (Version None)
Quarter: 2007Q4

REPORT INFORMATION
  Report Type: 
  Country: None (occurrence: None)
  Receive Date: 20071217
  Receipt Date: 20071204
  Transmission Date: 20080405
  Serious: Yes (Hospitalization, Other)
  Sender: FDA-Public Use
  Company Number: US-AMGEN-QUU254039

PATIENT
  Sex: Female
  Weight: 58.9 kg

DRUGS (13)
  1. ENBREL [Suspect]
     Indication: ANKYLOSING SPONDYLITIS
     Route: 058
     Dates: start: 20031203, end: 20060508
  2. METHOTREXATE [Suspect]
     Indication: DRUG USE FOR UNKNOWN INDICATION
     Dates: start: 20020416, end: 20060508
  3. NEURONTIN [Concomitant]
     Dates: start: 20020717
  4. MORPHINE [Concomitant]
     Dates: start: 20030428
  5. TEMAZEPAM [Concomitant]
  6. DILANTIN [Concomitant]
     Dates: start: 20040802
  7. REGLAN [Concomitant]
     Dates: start: 20040708
  8. LASIX [Concomitant]
     Dates: start: 20040322
  9. LAMICTAL [Concomitant]
     Dates: start: 20040826, end: 20050301
  10. SOMA [Concomitant]
     Dates: start: 20040322, end: 20060508
  11. REMICADE [Concomitant]
     Dates: start: 20021023, end: 20030609
  12. ZOLOFT [Concomitant]
  13. AMBIEN [Concomitant]

REACTIONS (7)
  - GASTRIC HYPOMOTILITY [None]
  - INSOMNIA [None]
  - OSTEOARTHRITIS [None]
  - OVERDOSE [None]
  - POLYNEUROPATHY IDIOPATHIC PROGRESSIVE [None]
  - ROTATOR CUFF SYNDROME [None]
  - TREMOR [None]
